FAERS Safety Report 21364559 (Version 2)
Quarter: 2022Q3

REPORT INFORMATION
  Report Type: Spontaneous
  Country: DE (occurrence: DE)
  Receive Date: 20220922
  Receipt Date: 20220929
  Transmission Date: 20221027
  Serious: Yes (Hospitalization)
  Sender: FDA-Public Use
  Company Number: DE-SAMSUNG BIOEPIS-SB-2022-18850

PATIENT
  Age: 70 Year
  Sex: Female
  Weight: 63.2 kg

DRUGS (17)
  1. ONTRUZANT [Suspect]
     Active Substance: TRASTUZUMAB-DTTB
     Indication: Breast cancer female
     Dosage: Q21D
     Route: 042
     Dates: start: 20220713, end: 20220720
  2. ONTRUZANT [Suspect]
     Active Substance: TRASTUZUMAB-DTTB
     Dosage: Q21D
     Route: 042
     Dates: end: 20220906
  3. ONTRUZANT [Suspect]
     Active Substance: TRASTUZUMAB-DTTB
     Dosage: Q21D
     Route: 042
  4. PERJETA [Suspect]
     Active Substance: PERTUZUMAB
     Indication: Breast cancer female
     Dosage: Q21D
     Route: 042
     Dates: start: 20220713, end: 20220720
  5. PERJETA [Suspect]
     Active Substance: PERTUZUMAB
     Route: 042
     Dates: end: 20220906
  6. DOCETAXEL [Suspect]
     Active Substance: DOCETAXEL
     Indication: Breast cancer female
     Dosage: Q21D
     Route: 042
     Dates: start: 20220713, end: 20220720
  7. DOCETAXEL [Suspect]
     Active Substance: DOCETAXEL
     Dosage: Q21D DOCETAXEL WAS REDUCED FROM 75 MG/KG TO 60 M/KG (TOTAL DOSE 105.6 MG)
     Route: 042
     Dates: start: 20220803, end: 20220810
  8. DOCETAXEL [Suspect]
     Active Substance: DOCETAXEL
     Dosage: EVERY 21 DAYS
     Route: 042
     Dates: end: 20220906
  9. CARBOPLATIN [Suspect]
     Active Substance: CARBOPLATIN
     Indication: Breast cancer female
     Dosage: Q21D
     Route: 042
     Dates: start: 20220713, end: 20220720
  10. CARBOPLATIN [Suspect]
     Active Substance: CARBOPLATIN
     Dosage: Q21D CARBOPLATIN WAS REDUCED FROM AUC 6 TO AUC 4 (TOTAL DOSE 233 MG)
     Route: 042
     Dates: start: 20220803, end: 20220810
  11. CARBOPLATIN [Suspect]
     Active Substance: CARBOPLATIN
     Dosage: Q21D
     Route: 042
     Dates: end: 20220906
  12. ATORVASTATIN [Concomitant]
     Active Substance: ATORVASTATIN
     Indication: Blood cholesterol increased
     Route: 048
     Dates: start: 20200630
  13. Metoprolol ratiopharm Succinate [Concomitant]
     Indication: Hypertension
     Route: 048
     Dates: start: 20200630
  14. METFORMIN HYDROCHLORIDE [Concomitant]
     Active Substance: METFORMIN HYDROCHLORIDE
     Indication: Diabetes mellitus
     Route: 048
     Dates: start: 20200630
  15. SITAGLIPTIN PHOSPHATE [Concomitant]
     Active Substance: SITAGLIPTIN PHOSPHATE
     Indication: Diabetes mellitus
     Route: 048
     Dates: start: 20200630
  16. ENOXAPARIN SODIUM [Concomitant]
     Active Substance: ENOXAPARIN SODIUM
     Indication: Thrombosis prophylaxis
     Route: 058
     Dates: start: 20220906
  17. DIMENHYDRINATE [Concomitant]
     Active Substance: DIMENHYDRINATE
     Indication: Antiemetic supportive care
     Dosage: UNKNOWN
     Route: 048
     Dates: start: 20220906

REACTIONS (4)
  - Diarrhoea [Recovered/Resolved]
  - Infection [Recovered/Resolved]
  - Renal failure [Recovered/Resolved]
  - Leukocytosis [Unknown]

NARRATIVE: CASE EVENT DATE: 20220720
